FAERS Safety Report 10136379 (Version 1)
Quarter: 2014Q2

REPORT INFORMATION
  Report Type: Spontaneous
  Country: GB (occurrence: GB)
  Receive Date: 20140429
  Receipt Date: 20140429
  Transmission Date: 20141212
  Serious: Yes (Hospitalization)
  Sender: FDA-Public Use
  Company Number: GB-ACCORD-023332

PATIENT
  Age: 84 Year
  Sex: Female

DRUGS (11)
  1. BUMETANIDE [Suspect]
     Indication: PRODUCT USED FOR UNKNOWN INDICATION
     Route: 048
  2. ATORVASTATIN [Concomitant]
  3. TOLBUTAMIDE/TOLBUTAMIDE SODIUM [Suspect]
     Indication: TYPE 2 DIABETES MELLITUS
     Dosage: 1G TWICE DAILY
     Route: 048
  4. LISINOPRIL [Suspect]
     Indication: HYPERTENSION
     Route: 048
  5. WARFARIN [Suspect]
     Indication: ATRIAL FIBRILLATION
     Dosage: AS PER INR
     Route: 048
  6. BISOPROLOL [Concomitant]
  7. LIRAGLUTIDE [Suspect]
     Indication: TYPE 2 DIABETES MELLITUS
     Dosage: AS DIRECTED
     Route: 048
  8. OMEPRAZOLE [Concomitant]
  9. PARACETAMOL [Concomitant]
  10. SPIRONOLACTONE [Suspect]
     Indication: PRODUCT USED FOR UNKNOWN INDICATION
     Route: 048
  11. ACARBOSE [Concomitant]

REACTIONS (4)
  - Hypoglycaemia [Unknown]
  - Epistaxis [Unknown]
  - International normalised ratio increased [Unknown]
  - Renal failure acute [Unknown]
